FAERS Safety Report 24236657 (Version 2)
Quarter: 2024Q4

REPORT INFORMATION
  Report Type: Spontaneous
  Country: CH (occurrence: CH)
  Receive Date: 20240822
  Receipt Date: 20241120
  Transmission Date: 20250115
  Serious: Yes (Other)
  Sender: REGENERON
  Company Number: CH-BAYER-2024A119475

PATIENT
  Sex: Male

DRUGS (3)
  1. EYLEA [Suspect]
     Active Substance: AFLIBERCEPT
     Indication: Diabetic retinal oedema
     Dosage: 2 MG, ONCE, SOLUTION FOR INJECTION IN PRE-FILLED SYRINGE, 40 MG/ML
     Dates: start: 20230522, end: 20230522
  2. EYLEA [Suspect]
     Active Substance: AFLIBERCEPT
     Dosage: 2 MG, SOLUTION FOR INJECTION IN PRE-FILLED SYRINGE, 40 MG/ML
     Dates: start: 20240814
  3. RANIBIZUMAB [Concomitant]
     Active Substance: RANIBIZUMAB
     Indication: Product used for unknown indication
     Dosage: 11 DF

REACTIONS (8)
  - Hypotony of eye [Unknown]
  - Bacterial endophthalmitis [Unknown]
  - Pseudophakia [Unknown]
  - Swelling of eyelid [Unknown]
  - Conjunctival hyperaemia [Unknown]
  - Conjunctival haemorrhage [Unknown]
  - Corneal erosion [Unknown]
  - Anterior chamber fibrin [Unknown]

NARRATIVE: CASE EVENT DATE: 20240815
